FAERS Safety Report 5706524-9 (Version None)
Quarter: 2008Q2

REPORT INFORMATION
  Report Type: 
  Country: None (occurrence: None)
  Receive Date: 20080414
  Receipt Date: 20080324
  Transmission Date: 20081010
  Serious: Yes (Life-Threatening, Hospitalization)
  Sender: FDA-Public Use
  Company Number: AE071001.ACA

PATIENT
  Sex: Female
  Weight: 78.0187 kg

DRUGS (24)
  1. AMICAR [Suspect]
     Dosage: 2 G PO BID
     Dates: start: 20070301, end: 20070924
  2. OMACOR                    (RELIANT PHARMACEUTICALS INC) [Suspect]
     Indication: HYPERLIPIDAEMIA
  3. ASPIRIN [Concomitant]
  4. CLARITIN [Concomitant]
  5. CINNAMIN [Concomitant]
  6. ESTROPIPATE [Concomitant]
  7. GARLIC [Concomitant]
  8. GEMFIBROZIL [Concomitant]
  9. LEVOTHYROXINE SODIUM [Concomitant]
  10. METFORMIN HCL [Concomitant]
  11. MULTI-VITAMIN [Concomitant]
  12. POTASSIUM CHLORIDE [Concomitant]
  13. COENZYME Q10 [Concomitant]
  14. REQUIP [Concomitant]
  15. ZETIA [Concomitant]
  16. ZOLOFT [Concomitant]
  17. BETA CAROTENE [Concomitant]
  18. VITAMIN E [Concomitant]
  19. FLAX SEED [Concomitant]
  20. ASCORBIC ACID [Concomitant]
  21. MAGNESIUM [Concomitant]
  22. FOLIC ACID [Concomitant]
  23. LORDATINE [Concomitant]
  24. ZANTAC [Concomitant]

REACTIONS (10)
  - ARTHRALGIA [None]
  - DRUG DISPENSING ERROR [None]
  - GROIN PAIN [None]
  - INTRACRANIAL ANEURYSM [None]
  - MIGRAINE [None]
  - NAUSEA [None]
  - NIGHT SWEATS [None]
  - PAIN [None]
  - PAIN IN EXTREMITY [None]
  - WRONG DRUG ADMINISTERED [None]
